FAERS Safety Report 21688240 (Version 1)
Quarter: 2022Q4

REPORT INFORMATION
  Report Type: Spontaneous
  Country: US (occurrence: US)
  Receive Date: 20221206
  Receipt Date: 20221206
  Transmission Date: 20230113
  Serious: No
  Sender: FDA-Public Use
  Company Number: US-ELI_LILLY_AND_COMPANY-US202211009976

PATIENT
  Sex: Male

DRUGS (4)
  1. TALTZ [Suspect]
     Active Substance: IXEKIZUMAB
     Indication: Product used for unknown indication
     Dosage: UNK UNK, MONTHLY (1/M)
     Route: 065
     Dates: start: 202105
  2. TALTZ [Suspect]
     Active Substance: IXEKIZUMAB
     Indication: Product used for unknown indication
     Dosage: UNK UNK, MONTHLY (1/M)
     Route: 065
     Dates: start: 202105
  3. TALTZ [Suspect]
     Active Substance: IXEKIZUMAB
     Dosage: UNK UNK, MONTHLY (1/M)
     Route: 065
  4. TALTZ [Suspect]
     Active Substance: IXEKIZUMAB
     Dosage: UNK UNK, MONTHLY (1/M)
     Route: 065

REACTIONS (4)
  - Spinal pain [Unknown]
  - Joint swelling [Unknown]
  - Injection site induration [Unknown]
  - Injection site pain [Unknown]
